FAERS Safety Report 21590069 (Version 2)
Quarter: 2022Q4

REPORT INFORMATION
  Report Type: Spontaneous
  Country: DE (occurrence: DE)
  Receive Date: 20221114
  Receipt Date: 20221115
  Transmission Date: 20230113
  Serious: Yes (Death)
  Sender: FDA-Public Use
  Company Number: DE-002147023-NVSC2022DE255172

PATIENT
  Age: 1 Year

DRUGS (1)
  1. ZOLGENSMA [Suspect]
     Active Substance: ONASEMNOGENE ABEPARVOVEC-XIOI
     Indication: Spinal muscular atrophy
     Dosage: UNK
     Route: 042
     Dates: start: 20210331, end: 20210331

REACTIONS (1)
  - Brain death [Fatal]

NARRATIVE: CASE EVENT DATE: 20221111
